FAERS Safety Report 21421441 (Version 1)
Quarter: 2022Q4

REPORT INFORMATION
  Report Type: Spontaneous
  Country: US (occurrence: None)
  Receive Date: 20221006
  Receipt Date: 20221006
  Transmission Date: 20230113
  Serious: Yes (unspecified)
  Sender: FDA-Public Use
  Company Number: None

PATIENT
  Age: 62 Year
  Sex: Female
  Weight: 50.35 kg

DRUGS (2)
  1. FABRAZYME [Suspect]
     Active Substance: AGALSIDASE BETA
     Indication: Fabry^s disease
     Dosage: FREQUENCY : EVERY OTHER WEEK;?
     Route: 042
     Dates: start: 20221006, end: 20221006
  2. FABRAZYME [Suspect]
     Active Substance: AGALSIDASE BETA
     Dosage: FREQUENCY : EVERY OTHER WEEK;?
     Route: 042

REACTIONS (4)
  - Infusion related reaction [None]
  - Chest discomfort [None]
  - Paraesthesia [None]
  - Blood pressure increased [None]

NARRATIVE: CASE EVENT DATE: 20221006
